FAERS Safety Report 21962174 (Version 1)
Quarter: 2023Q1

REPORT INFORMATION
  Report Type: Spontaneous
  Country: FR (occurrence: FR)
  Receive Date: 20230207
  Receipt Date: 20230207
  Transmission Date: 20230418
  Serious: Yes (Hospitalization, Other)
  Sender: FDA-Public Use
  Company Number: FR-009507513-2301FRA010134

PATIENT
  Age: 75 Year
  Sex: Male
  Weight: 59 kg

DRUGS (2)
  1. AXITINIB [Suspect]
     Active Substance: AXITINIB
     Indication: Clear cell renal cell carcinoma
     Dosage: UNK
     Dates: start: 20220411
  2. KEYTRUDA [Suspect]
     Active Substance: PEMBROLIZUMAB
     Indication: Clear cell renal cell carcinoma
     Dosage: UNK
     Dates: start: 20220411

REACTIONS (1)
  - Guillain-Barre syndrome [Unknown]

NARRATIVE: CASE EVENT DATE: 20220704
